FAERS Safety Report 5356061-9 (Version None)
Quarter: 2007Q2

REPORT INFORMATION
  Report Type: 
  Country: None (occurrence: None)
  Receive Date: 20070524
  Receipt Date: 20060512
  Transmission Date: 20071010
  Serious: Yes (Death)
  Sender: FDA-Public Use
  Company Number: T200600537

PATIENT
  Sex: Female

DRUGS (1)
  1. METHADOSE [Suspect]
     Indication: DRUG DETOXIFICATION
     Dosage: 80 MG, QD, ORAL
     Route: 048

REACTIONS (1)
  - OVERDOSE [None]
